FAERS Safety Report 8245312-9 (Version None)
Quarter: 2012Q1

REPORT INFORMATION
  Report Type: 
  Country: None (occurrence: None)
  Receive Date: 20120329
  Receipt Date: 20120321
  Transmission Date: 20120608
  Serious: Yes (Hospitalization)
  Sender: FDA-Public Use
  Company Number: US-ELI_LILLY_AND_COMPANY-US201202007276

PATIENT
  Sex: Female

DRUGS (16)
  1. BENICAR [Concomitant]
  2. FLOVENT [Concomitant]
  3. MONTELUKAST [Concomitant]
  4. PREDNISONE [Concomitant]
     Indication: CHRONIC OBSTRUCTIVE PULMONARY DISEASE
     Dosage: 20 MG, QD
  5. CHLORTHALIDONE [Concomitant]
  6. IBUPROFEN [Concomitant]
  7. LEVOTHROID [Concomitant]
  8. TIOTROPIUM [Concomitant]
  9. ADVAIR DISKUS 100/50 [Concomitant]
  10. SIMVASTATIN [Concomitant]
  11. FORTEO [Suspect]
     Dosage: UNK, UNKNOWN
     Route: 065
  12. LORATADINE [Concomitant]
  13. LORAZEPAM [Concomitant]
  14. WARFARIN SODIUM [Concomitant]
  15. ROFLUMILAST [Concomitant]
  16. ANAGRELIDE HCL [Concomitant]

REACTIONS (1)
  - CHRONIC OBSTRUCTIVE PULMONARY DISEASE [None]
